FAERS Safety Report 22728580 (Version 3)
Quarter: 2025Q1

REPORT INFORMATION
  Report Type: Report from Study
  Country: US (occurrence: US)
  Receive Date: 20230720
  Receipt Date: 20250117
  Transmission Date: 20250409
  Serious: Yes (Other)
  Sender: ABBVIE
  Company Number: US-ABBVIE-5334276

PATIENT
  Age: 65 Year
  Sex: Female

DRUGS (2)
  1. HUMIRA [Suspect]
     Active Substance: ADALIMUMAB
     Indication: Psoriatic arthropathy
     Route: 058
     Dates: start: 20200313
  2. HUMIRA [Suspect]
     Active Substance: ADALIMUMAB
     Route: 058
     Dates: start: 20200120

REACTIONS (6)
  - Retinal degeneration [Not Recovered/Not Resolved]
  - Cataract [Unknown]
  - Osteoporosis [Not Recovered/Not Resolved]
  - Coeliac disease [Recovering/Resolving]
  - COVID-19 [Unknown]
  - Conjunctival cyst [Unknown]

NARRATIVE: CASE EVENT DATE: 20230301
